FAERS Safety Report 8955995 (Version 1)
Quarter: 2012Q4

REPORT INFORMATION
  Report Type: 
  Country: US (occurrence: US)
  Receive Date: 20121210
  Receipt Date: 20121210
  Transmission Date: 20130627
  Serious: Yes (Hospitalization, Other)
  Sender: FDA-Public Use
  Company Number: US-NOVOPROD-365562

PATIENT
  Age: 3 Year
  Sex: Female

DRUGS (1)
  1. NORDITROPIN [Suspect]
     Indication: GROWTH HORMONE DEFICIENCY
     Dosage: Q6days
     Route: 058
     Dates: start: 20121114

REACTIONS (2)
  - Syncope [Recovered/Resolved]
  - Hypoglycaemia [Unknown]
